FAERS Safety Report 6887340-1 (Version None)
Quarter: 2010Q3

REPORT INFORMATION
  Report Type: 
  Country: None (occurrence: None)
  Receive Date: 20100730
  Receipt Date: 20090825
  Transmission Date: 20110219
  Serious: No
  Sender: FDA-Public Use
  Company Number: A0804062A

PATIENT
  Age: 29 Year
  Sex: Male

DRUGS (1)
  1. SUMATRIPTAN SUCCINATE [Suspect]
     Indication: MIGRAINE
     Dosage: 50MG SINGLE DOSE
     Dates: start: 20090824

REACTIONS (1)
  - DRUG INEFFECTIVE [None]
